FAERS Safety Report 4410883-7 (Version None)
Quarter: 2004Q3

REPORT INFORMATION
  Report Type: 
  Country: None (occurrence: None)
  Receive Date: 20040729
  Receipt Date: 20040721
  Transmission Date: 20050211
  Serious: Yes (Hospitalization)
  Sender: FDA-Public Use
  Company Number: AU-MERCK-0407AUS00083

PATIENT
  Age: 67 Year
  Sex: Male

DRUGS (10)
  1. AMIODARONE [Concomitant]
     Route: 065
  2. CARVEDILOL [Concomitant]
     Route: 065
  3. COLCHICINE [Concomitant]
     Route: 065
     Dates: start: 20040401
  4. DIGOXIN [Concomitant]
     Route: 065
  5. ENALAPRIL MALEATE [Concomitant]
     Route: 065
  6. FUROSEMIDE [Concomitant]
     Route: 065
  7. ROXITHROMYCIN [Concomitant]
     Route: 065
     Dates: start: 20040401
  8. ZOCOR [Suspect]
     Indication: HYPERCHOLESTEROLAEMIA
     Route: 048
     Dates: start: 19990701, end: 20040401
  9. SPIRONOLACTONE [Concomitant]
     Route: 065
  10. WARFARIN [Concomitant]
     Route: 065

REACTIONS (5)
  - BLOOD CREATININE INCREASED [None]
  - BLOOD UREA INCREASED [None]
  - BRONCHOPNEUMONIA [None]
  - CARDIAC FAILURE [None]
  - RHABDOMYOLYSIS [None]
